FAERS Safety Report 10696542 (Version 4)
Quarter: 2015Q3

REPORT INFORMATION
  Report Type: Report from Study
  Country: US (occurrence: US)
  Receive Date: 20150107
  Receipt Date: 20150819
  Transmission Date: 20151125
  Serious: No
  Sender: FDA-Public Use
  Company Number: US-GILEAD-2015-0130660

PATIENT
  Age: 59 Year
  Sex: Female

DRUGS (4)
  1. VELETRI [Concomitant]
     Active Substance: EPOPROSTENOL
  2. ADCIRCA [Concomitant]
     Active Substance: TADALAFIL
     Dosage: 20 MG, QD
  3. AMBRISENTAN [Suspect]
     Active Substance: AMBRISENTAN
     Indication: PULMONARY HYPERTENSION
     Dosage: 10 MG, QD
     Route: 065
     Dates: start: 20140928
  4. AMBRISENTAN [Suspect]
     Active Substance: AMBRISENTAN
     Indication: CONNECTIVE TISSUE DISORDER

REACTIONS (3)
  - Diarrhoea [Unknown]
  - Pain in jaw [Unknown]
  - Rash [Unknown]
